FAERS Safety Report 15745487 (Version 2)
Quarter: 2018Q4

REPORT INFORMATION
  Report Type: Spontaneous
  Country: BR (occurrence: BR)
  Receive Date: 20181220
  Receipt Date: 20181228
  Transmission Date: 20190205
  Serious: No
  Sender: FDA-Public Use
  Company Number: BR-SA-2018SA344017

PATIENT
  Sex: Female
  Weight: 88 kg

DRUGS (1)
  1. CLEXANE [Suspect]
     Active Substance: ENOXAPARIN SODIUM
     Indication: THROMBOSIS
     Dosage: 40 MG, QD
     Route: 058
     Dates: start: 20181212

REACTIONS (4)
  - Constipation [Recovered/Resolved]
  - Exposure during pregnancy [Unknown]
  - Pain [Recovered/Resolved]
  - Product use issue [Unknown]
